FAERS Safety Report 14486954 (Version 1)
Quarter: 2018Q1

REPORT INFORMATION
  Report Type: Spontaneous
  Country: FR (occurrence: FR)
  Receive Date: 20180205
  Receipt Date: 20180205
  Transmission Date: 20180509
  Serious: Yes (Hospitalization)
  Sender: FDA-Public Use
  Company Number: FR-PFIZER INC-2018042485

PATIENT
  Age: 82 Year
  Sex: Female
  Weight: 70 kg

DRUGS (8)
  1. INDAPAMIDE. [Concomitant]
     Active Substance: INDAPAMIDE
     Route: 048
  2. CLOZAPINE MYLAN [Suspect]
     Active Substance: CLOZAPINE
     Indication: DRUG ADMINISTRATION ERROR
     Dosage: 200 MG, SINGLE
     Route: 048
     Dates: start: 20171205, end: 20171205
  3. MESTINON [Suspect]
     Active Substance: PYRIDOSTIGMINE BROMIDE
     Indication: DRUG ADMINISTRATION ERROR
     Dosage: 60 MG, SINGLE
     Route: 048
     Dates: start: 20171205, end: 20171205
  4. LERCAPRESS /01366402/ [Concomitant]
     Active Substance: LERCANIDIPINE HYDROCHLORIDE
     Route: 048
  5. EFFEXOR LP [Suspect]
     Active Substance: VENLAFAXINE HYDROCHLORIDE
     Indication: DRUG ADMINISTRATION ERROR
     Dosage: 150 MG, SINGLE
     Route: 048
     Dates: start: 20171205, end: 20171205
  6. SPECIAFOLDINE [Suspect]
     Active Substance: FOLIC ACID
     Indication: DRUG ADMINISTRATION ERROR
     Dosage: 5 MG, SINGLE
     Route: 048
     Dates: start: 20171205, end: 20171205
  7. IDEOS 500 [Concomitant]
     Route: 048
  8. KARDEGIC [Concomitant]
     Active Substance: ASPIRIN DL-LYSINE
     Route: 048

REACTIONS (2)
  - Arrhythmia [Recovered/Resolved]
  - Coma [Recovered/Resolved]

NARRATIVE: CASE EVENT DATE: 20171205
